FAERS Safety Report 9239670 (Version 1)
Quarter: 2013Q2

REPORT INFORMATION
  Report Type: Spontaneous
  Country: FR (occurrence: FR)
  Receive Date: 20130418
  Receipt Date: 20130418
  Transmission Date: 20140414
  Serious: Yes (Hospitalization)
  Sender: FDA-Public Use
  Company Number: FR-GE HEALTHCARE MEDICAL DIAGNOSTICS-OMPQ-NO-1304S-0460

PATIENT
  Age: 72 Year
  Sex: Female

DRUGS (14)
  1. OMNIPAQUE [Suspect]
     Indication: ACUTE CORONARY SYNDROME
     Dosage: DOSE NOT REPORTED
     Route: 065
     Dates: start: 201301, end: 201301
  2. OMNIPAQUE [Suspect]
     Indication: DIAGNOSTIC PROCEDURE
  3. VENOFER [Concomitant]
  4. MAG 2 [Concomitant]
     Indication: MUSCLE SPASMS
     Route: 048
  5. KARDEGIC [Concomitant]
     Route: 048
  6. NOVORAPID FLEXPEN [Concomitant]
     Route: 058
  7. BRILIQUE [Concomitant]
     Route: 048
  8. LASILIX [Concomitant]
     Route: 048
     Dates: start: 20130117
  9. APROVEL [Concomitant]
     Route: 048
     Dates: start: 20130116
  10. EUPRESSYL [Concomitant]
     Route: 048
  11. NIDREL [Concomitant]
     Route: 048
     Dates: start: 20130116
  12. EUPANTOL [Concomitant]
     Route: 048
  13. CRESTOR [Concomitant]
     Route: 048
  14. TARDYFERON [Concomitant]

REACTIONS (2)
  - Renal tubular necrosis [Recovered/Resolved]
  - Renal failure acute [Recovered/Resolved]
